FAERS Safety Report 4568426-3 (Version None)
Quarter: 2005Q1

REPORT INFORMATION
  Report Type: 
  Country: None (occurrence: None)
  Receive Date: 20050131
  Receipt Date: 20050120
  Transmission Date: 20050727
  Serious: Yes (Hospitalization)
  Sender: FDA-Public Use
  Company Number: 2005017746

PATIENT
  Sex: 0

DRUGS (1)
  1. GENOTROPIN [Suspect]

REACTIONS (3)
  - ADRENAL CORTICAL INSUFFICIENCY [None]
  - HEADACHE [None]
  - PYREXIA [None]
